FAERS Safety Report 23574319 (Version 2)
Quarter: 2024Q1

REPORT INFORMATION
  Report Type: Report from Study
  Country: US (occurrence: US)
  Receive Date: 20240228
  Receipt Date: 20240301
  Transmission Date: 20240409
  Serious: No
  Sender: FDA-Public Use
  Company Number: US-ASTELLAS-2024US005687

PATIENT
  Sex: Male

DRUGS (1)
  1. ENZALUTAMIDE [Suspect]
     Active Substance: ENZALUTAMIDE
     Indication: Product used for unknown indication
     Route: 048

REACTIONS (4)
  - Heart rate increased [Unknown]
  - Blood pressure increased [Unknown]
  - Hot flush [Unknown]
  - Fatigue [Unknown]
